FAERS Safety Report 23043607 (Version 1)
Quarter: 2023Q4

REPORT INFORMATION
  Report Type: Spontaneous
  Country: US (occurrence: US)
  Receive Date: 20231009
  Receipt Date: 20231009
  Transmission Date: 20240110
  Serious: Yes (Other)
  Sender: FDA-Public Use
  Company Number: US-BEH-2023163738

PATIENT
  Sex: Female

DRUGS (11)
  1. HIZENTRA [Suspect]
     Active Substance: HUMAN IMMUNOGLOBULIN G
     Indication: Immunodeficiency common variable
     Dosage: 16 GRAM, BIW
     Route: 058
  2. NORTRIPTYLINE [Concomitant]
     Active Substance: NORTRIPTYLINE
  3. REMERON [Concomitant]
     Active Substance: MIRTAZAPINE
  4. DOXYCYCLINE [Concomitant]
     Active Substance: DOXYCYCLINE
  5. LEVEMIR [Concomitant]
     Active Substance: INSULIN DETEMIR
  6. ADVAIR HFA [Concomitant]
     Active Substance: FLUTICASONE PROPIONATE\SALMETEROL XINAFOATE
  7. CLORAZEPATE DIPOTASSIUM [Concomitant]
     Active Substance: CLORAZEPATE DIPOTASSIUM
  8. FUROSEMIDE [Concomitant]
     Active Substance: FUROSEMIDE
  9. METOLAZONE [Concomitant]
     Active Substance: METOLAZONE
  10. ONDANSETRON [Concomitant]
     Active Substance: ONDANSETRON
  11. PRIMIDONE [Concomitant]
     Active Substance: PRIMIDONE

REACTIONS (1)
  - Breast cancer [Unknown]

NARRATIVE: CASE EVENT DATE: 20230101
